FAERS Safety Report 8459902-1 (Version None)
Quarter: 2012Q2

REPORT INFORMATION
  Report Type: 
  Country: None (occurrence: None)
  Receive Date: 20120622
  Receipt Date: 20120612
  Transmission Date: 20120825
  Serious: Yes (Hospitalization, Other)
  Sender: FDA-Public Use
  Company Number: US-ABBOTT-12P-163-0936990-00

PATIENT
  Sex: Female
  Weight: 65.83 kg

DRUGS (14)
  1. UNKNOWN MEDICATION [Concomitant]
     Indication: HYPERTENSION
  2. ACETAMINOPHEN [Concomitant]
     Indication: HEADACHE
  3. HUMIRA [Suspect]
     Dates: start: 20120608
  4. LISINOPRIL [Concomitant]
     Indication: HYPERTENSION
  5. XANAX [Concomitant]
     Indication: PRODUCT USED FOR UNKNOWN INDICATION
     Dosage: 0.25 MG DAIY AT BEDTIME
  6. SYNTHROID [Concomitant]
     Indication: THYROID DISORDER
  7. HUMIRA [Suspect]
     Indication: CROHN'S DISEASE
     Route: 058
     Dates: start: 20100101, end: 20110101
  8. LISINOPRIL [Concomitant]
  9. ULTRAM [Concomitant]
     Indication: PAIN
  10. PRILOSEC [Concomitant]
     Indication: PRODUCT USED FOR UNKNOWN INDICATION
     Dosage: DAILY
  11. AMLODIPINE [Concomitant]
     Indication: HYPERTENSION
  12. HUMIRA [Suspect]
     Dosage: LOADING DOSE
     Route: 058
     Dates: start: 20120526, end: 20120526
  13. CLONIDINE [Concomitant]
     Indication: HYPERTENSION
  14. HYDROCHLOROTHIAZIDE [Concomitant]
     Indication: PRODUCT USED FOR UNKNOWN INDICATION

REACTIONS (34)
  - ABDOMINAL PAIN [None]
  - HEADACHE [None]
  - SPINAL FRACTURE [None]
  - MALAISE [None]
  - CROHN'S DISEASE [None]
  - PROCEDURAL NAUSEA [None]
  - DRUG INEFFECTIVE [None]
  - CHOLECYSTITIS [None]
  - FEELING ABNORMAL [None]
  - BACK PAIN [None]
  - INTERNATIONAL NORMALISED RATIO DECREASED [None]
  - LIVER INJURY [None]
  - INSOMNIA [None]
  - ABASIA [None]
  - JOINT DISLOCATION [None]
  - GALLBLADDER OPERATION [None]
  - ARTHRALGIA [None]
  - NASAL CONGESTION [None]
  - NECK PAIN [None]
  - BILIARY TRACT DISORDER [None]
  - DEHYDRATION [None]
  - SINUSITIS [None]
  - NAUSEA [None]
  - FEMALE GENITAL TRACT FISTULA [None]
  - PARANASAL SINUS HYPERSECRETION [None]
  - PAIN [None]
  - ASTHENIA [None]
  - CERVICAL VERTEBRAL FRACTURE [None]
  - DEEP VEIN THROMBOSIS [None]
  - DIARRHOEA [None]
  - FALL [None]
  - FISTULA DISCHARGE [None]
  - ROTATOR CUFF SYNDROME [None]
  - MUSCULOSKELETAL PAIN [None]
